FAERS Safety Report 8830819 (Version 1)
Quarter: 2012Q4

REPORT INFORMATION
  Report Type: 
  Country: DE (occurrence: DE)
  Receive Date: 20121008
  Receipt Date: 20121008
  Transmission Date: 20130627
  Serious: Yes (Other)
  Sender: FDA-Public Use
  Company Number: DE-SANOFI-AVENTIS-2012SA072828

PATIENT
  Age: 77 Year
  Sex: Male
  Weight: 93 kg

DRUGS (14)
  1. ARAVA [Suspect]
     Indication: DRUG USE FOR UNKNOWN INDICATION
     Route: 048
  2. TOCILIZUMAB [Suspect]
     Indication: RHEUMATOID ARTHRITIS
     Dosage: every 4 weeks
     Route: 042
     Dates: start: 20111108
  3. ACETYLSALICYLIC ACID [Suspect]
     Indication: DRUG USE FOR UNKNOWN INDICATION
     Route: 065
  4. DICLOFENAC [Suspect]
     Indication: DRUG USE FOR UNKNOWN INDICATION
     Route: 048
  5. ASPIRIN [Concomitant]
  6. METOPROLOL [Concomitant]
  7. ENALAPRIL MALEATE [Concomitant]
  8. GLYCERYL TRINITRATE [Concomitant]
  9. FUROSEMIDE [Concomitant]
  10. PANTOPRAZOLE [Concomitant]
  11. KALINOR [Concomitant]
  12. FENOTEROL [Concomitant]
     Dosage: dose: 2x1 hub
  13. MIFLONIDE [Concomitant]
  14. PREDNISOLONE [Concomitant]

REACTIONS (3)
  - Blood bilirubin increased [Unknown]
  - Blood bilirubin increased [Recovered/Resolved with Sequelae]
  - Alanine aminotransferase increased [Unknown]
